FAERS Safety Report 15356506 (Version 2)
Quarter: 2018Q4

REPORT INFORMATION
  Report Type: Spontaneous
  Country: US (occurrence: US)
  Receive Date: 20180906
  Receipt Date: 20181027
  Transmission Date: 20190204
  Serious: No
  Sender: FDA-Public Use
  Company Number: US-IPSEN BIOPHARMACEUTICALS, INC.-2018-13000

PATIENT
  Age: 59 Year
  Sex: Male

DRUGS (14)
  1. XOPENEX [Concomitant]
     Active Substance: LEVALBUTEROL HYDROCHLORIDE
  2. LEVSIN [Concomitant]
     Active Substance: HYOSCYAMINE SULFATE
  3. XERMELO [Suspect]
     Active Substance: TELOTRISTAT ETHYL
     Indication: CARCINOID SYNDROME
     Route: 048
     Dates: start: 20180803, end: 20180821
  4. DILTIAZEM. [Concomitant]
     Active Substance: DILTIAZEM
  5. CLARITIN [Concomitant]
     Active Substance: LORATADINE
  6. MUCINEX [Concomitant]
     Active Substance: GUAIFENESIN
  7. ASMANEX [Concomitant]
     Active Substance: MOMETASONE FUROATE
  8. SOMATULINE [Concomitant]
     Active Substance: LANREOTIDE ACETATE
  9. PANTOPRAZOLE SODIUM. [Concomitant]
     Active Substance: PANTOPRAZOLE SODIUM
  10. FLONASE [Concomitant]
     Active Substance: FLUTICASONE PROPIONATE
  11. TESSALON [Concomitant]
     Active Substance: BENZONATATE
  12. XERMELO [Suspect]
     Active Substance: TELOTRISTAT ETHYL
     Route: 048
     Dates: start: 20180821
  13. ASTELIN [Concomitant]
     Active Substance: AZELASTINE HYDROCHLORIDE
  14. SINGULAIR [Concomitant]
     Active Substance: MONTELUKAST SODIUM

REACTIONS (1)
  - Rash [Unknown]

NARRATIVE: CASE EVENT DATE: 20180804
